FAERS Safety Report 8335504-2 (Version None)
Quarter: 2012Q2

REPORT INFORMATION
  Report Type: 
  Country: None (occurrence: None)
  Receive Date: 20120503
  Receipt Date: 20120426
  Transmission Date: 20120825
  Serious: Yes (Life-Threatening)
  Sender: FDA-Public Use
  Company Number: AU-BAXTER-2012BH007069

PATIENT
  Sex: Male

DRUGS (2)
  1. KIOVIG [Suspect]
     Route: 042
     Dates: start: 20120220, end: 20120220
  2. KIOVIG [Suspect]
     Route: 042
     Dates: start: 20120220, end: 20120220

REACTIONS (4)
  - DYSPNOEA [None]
  - CHILLS [None]
  - PALPITATIONS [None]
  - FLUSHING [None]
